FAERS Safety Report 21493952 (Version 1)
Quarter: 2022Q4

REPORT INFORMATION
  Report Type: Spontaneous
  Country: DK (occurrence: DK)
  Receive Date: 20221021
  Receipt Date: 20221021
  Transmission Date: 20230112
  Serious: Yes (Disabling)
  Sender: FDA-Public Use
  Company Number: None

PATIENT
  Age: 18 Year
  Sex: Male

DRUGS (1)
  1. DULOXETINE HYDROCHLORIDE [Suspect]
     Active Substance: DULOXETINE HYDROCHLORIDE
     Indication: Neuralgia
     Dosage: STRENGTH: 30 MG, UNIT DOSE : 30 MG, DURATION : 9 DAYS, FREQUENCY TIME : 1 DAY
     Route: 065
     Dates: start: 20210412, end: 20210421

REACTIONS (7)
  - Feeling abnormal [Recovered/Resolved]
  - Incoherent [Recovered/Resolved]
  - Headache [Recovered/Resolved]
  - Disorientation [Recovered/Resolved]
  - Dry mouth [Recovered/Resolved]
  - Thinking abnormal [Recovered/Resolved]
  - Hallucination [Recovered/Resolved]

NARRATIVE: CASE EVENT DATE: 20210401
